FAERS Safety Report 23722459 (Version 5)
Quarter: 2025Q1

REPORT INFORMATION
  Report Type: Spontaneous
  Country: FR (occurrence: FR)
  Receive Date: 20240409
  Receipt Date: 20250218
  Transmission Date: 20250408
  Serious: Yes (Life-Threatening, Other)
  Sender: GILEAD
  Company Number: None

PATIENT
  Age: 61 Year
  Sex: Male
  Weight: 76 kg

DRUGS (11)
  1. YESCARTA [Suspect]
     Active Substance: AXICABTAGENE CILOLEUCEL
     Indication: Diffuse large B-cell lymphoma
     Route: 042
     Dates: start: 20240311, end: 20240311
  2. SKENAN [Concomitant]
     Active Substance: MORPHINE SULFATE
     Indication: Analgesic therapy
     Dosage: 1 CP MATIN ET SOIR
     Route: 048
     Dates: start: 20240305
  3. VALACYCLOVIR HYDROCHLORIDE [Concomitant]
     Active Substance: VALACYCLOVIR HYDROCHLORIDE
     Indication: Prophylaxis
     Dosage: 1 CP MATIN ET SOIR
     Route: 048
     Dates: start: 20240305
  4. LEUCOVORIN CALCIUM [Concomitant]
     Active Substance: LEUCOVORIN CALCIUM
     Indication: Prophylaxis
     Dosage: 25 MG X 2 / SEMAINE
     Route: 048
     Dates: start: 20240305
  5. MORPHINE SULFATE [Concomitant]
     Active Substance: MORPHINE SULFATE
     Indication: Analgesic therapy
     Dosage: 1 CP / 4H SI BESOIN
     Route: 048
     Dates: start: 20240305
  6. ACUPAN [Concomitant]
     Active Substance: NEFOPAM HYDROCHLORIDE
     Indication: Analgesic therapy
     Dosage: 1 AMPOULE / 6H SI BESOIN
     Route: 048
     Dates: start: 20240305
  7. PIPERACILLIN SODIUM\TAZOBACTAM SODIUM [Concomitant]
     Active Substance: PIPERACILLIN SODIUM\TAZOBACTAM SODIUM
     Indication: Febrile neutropenia
     Route: 042
     Dates: start: 20240314
  8. GABAPENTINE ALTER [Concomitant]
     Indication: Analgesic therapy
     Dosage: 1 G?LULE MATIN MIDI ET SOIR
     Route: 048
     Dates: start: 20240305
  9. FILGRASTIM [Concomitant]
     Active Substance: FILGRASTIM
     Indication: Neutropenia
     Route: 042
     Dates: start: 20240313, end: 20240319
  10. TOCILIZUMAB [Concomitant]
     Active Substance: TOCILIZUMAB
     Indication: Cytokine release syndrome
     Dosage: 600 MG X 3 / J
     Route: 058
     Dates: start: 20240314, end: 20240314
  11. BACTRIM [Concomitant]
     Active Substance: SULFAMETHOXAZOLE\TRIMETHOPRIM
     Indication: Prophylaxis
     Dosage: 1 CP LE MATIN
     Route: 048
     Dates: start: 20240305

REACTIONS (4)
  - Myelitis [Recovering/Resolving]
  - Immune effector cell-associated neurotoxicity syndrome [Recovered/Resolved]
  - Cytopenia [Not Recovered/Not Resolved]
  - Cytokine release syndrome [Recovered/Resolved]

NARRATIVE: CASE EVENT DATE: 20240313
